FAERS Safety Report 7455153-8 (Version None)
Quarter: 2011Q2

REPORT INFORMATION
  Report Type: 
  Country: None (occurrence: None)
  Receive Date: 20110503
  Receipt Date: 20110425
  Transmission Date: 20111010
  Serious: Yes (Other)
  Sender: FDA-Public Use
  Company Number: ES-SHIRE-CQT2-2011-00009

PATIENT
  Sex: Female
  Weight: 50 kg

DRUGS (12)
  1. PEGYLATED INTEFERON ALFA 2A [Suspect]
     Dosage: 1.5 MILLION IU, 3 M IU-4.5 M IU 3 TIMES PER WEEK
     Route: 058
     Dates: start: 20050413, end: 20050704
  2. PEGYLATED INTEFERON ALFA 2A [Suspect]
     Dosage: 1.5 MILLION IU, 5 TIMES PER WEEK
     Route: 058
     Dates: start: 20070209, end: 20070221
  3. PEGYLATED INTEFERON ALFA 2A [Suspect]
     Dosage: 1.5 MILLION IU, 6 TIMES PER WEEK
     Route: 058
     Dates: start: 20070222, end: 20070403
  4. ANAGRELIDE HCL [Suspect]
     Indication: ESSENTIAL THROMBOCYTHAEMIA
     Dosage: 0.5 MG, 3X/DAY:TID
     Route: 048
     Dates: start: 20050705, end: 20050721
  5. ANAGRELIDE HCL [Suspect]
     Dosage: 1 MG DAILY ALTERNATING WITH 1.5 MG DAILY
     Route: 048
     Dates: start: 20000516, end: 20050406
  6. ANAGRELIDE HCL [Suspect]
     Dosage: 0.5 MG, 1X/DAY:QD
     Route: 048
     Dates: start: 20110223
  7. PEGYLATED INTEFERON ALFA 2A [Suspect]
     Dosage: 1.5 MILLION IU, 3 TIMES WEEKLY
     Route: 058
     Dates: start: 20070108, end: 20070122
  8. PEGYLATED INTEFERON ALFA 2A [Suspect]
     Dosage: 1.5 MILLION IU, EVERY OTHER DAY
     Route: 058
     Dates: start: 20070123, end: 20070208
  9. PEGYLATED INTEFERON ALFA 2A [Suspect]
     Dosage: 1.5 MILLION IU, 1X/DAY:QD
     Route: 058
     Dates: start: 20110113
  10. HYDROXYUREA [Suspect]
     Indication: ESSENTIAL THROMBOCYTHAEMIA
     Dosage: 500 MG DAILY ALTERNATING WITH 1500 MG DAILY
     Route: 048
     Dates: start: 20050808, end: 20070221
  11. PEGYLATED INTEFERON ALFA 2A [Suspect]
     Indication: ESSENTIAL THROMBOCYTHAEMIA
     Dosage: 1.5 MILLION IU, 6 TIMES PER WEEK
     Route: 058
     Dates: start: 20070721, end: 20080925
  12. ANAGRELIDE HCL [Suspect]
     Dosage: 0.5 MG, 2X/DAY:BID
     Route: 048
     Dates: start: 20081001

REACTIONS (2)
  - ABORTION SPONTANEOUS [None]
  - DRUG EXPOSURE DURING PREGNANCY [None]
